FAERS Safety Report 6903640-0 (Version None)
Quarter: 2010Q3

REPORT INFORMATION
  Report Type: 
  Country: None (occurrence: None)
  Receive Date: 20100803
  Receipt Date: 20100714
  Transmission Date: 20110219
  Serious: Yes (Other)
  Sender: FDA-Public Use
  Company Number: US-RANBAXY-2010US-35982

PATIENT

DRUGS (3)
  1. VERAPAMIL [Suspect]
     Indication: CHEST PAIN
     Dosage: 80 MG, TID
     Route: 065
  2. METOPROLOL [Suspect]
     Indication: ANGINA PECTORIS
     Dosage: 50 MG, BID
     Route: 065
  3. GLYCERYL TRINITRATE [Concomitant]
     Indication: PRODUCT USED FOR UNKNOWN INDICATION
     Dosage: 50 MCG, QD
     Route: 065

REACTIONS (4)
  - BRADYCARDIA [None]
  - CARDIAC FAILURE [None]
  - DRUG INTERACTION [None]
  - HYPOTENSION [None]
